FAERS Safety Report 8202170-6 (Version None)
Quarter: 2012Q1

REPORT INFORMATION
  Report Type: 
  Country: None (occurrence: None)
  Receive Date: 20120312
  Receipt Date: 20120301
  Transmission Date: 20120608
  Serious: Yes (Death, Other)
  Sender: FDA-Public Use
  Company Number: JP-AMGEN-JPNSP2011034885

PATIENT
  Age: 74 Year
  Sex: Male
  Weight: 64 kg

DRUGS (6)
  1. DEPAS [Concomitant]
     Indication: INSOMNIA
     Dosage: UNCERTAINTY
     Route: 048
  2. ROMIPLATE [Suspect]
     Indication: IDIOPATHIC THROMBOCYTOPENIC PURPURA
     Dosage: 6.3 MG/KG, QD
     Route: 058
     Dates: start: 20110615, end: 20111214
  3. NORVASC [Concomitant]
     Indication: HYPERTENSION
     Dosage: UNCERTAINTY
     Route: 048
  4. LIPITOR [Concomitant]
     Indication: HYPERLIPIDAEMIA
     Dosage: UNCERTAINTY
     Route: 048
  5. TEGRETOL [Concomitant]
     Indication: PROPHYLAXIS
     Dosage: UNCERTAINTY
     Route: 048
  6. ALLOPURINOL [Concomitant]
     Indication: HYPERURICAEMIA
     Dosage: UNCERTAINTY
     Route: 048

REACTIONS (5)
  - DEATH [None]
  - HAEMORRHAGE INTRACRANIAL [None]
  - NASAL VESTIBULITIS [None]
  - DIZZINESS POSTURAL [None]
  - DROWNING [None]
